FAERS Safety Report 16893675 (Version 1)
Quarter: 2019Q4

REPORT INFORMATION
  Report Type: Spontaneous
  Country: IT (occurrence: IT)
  Receive Date: 20191008
  Receipt Date: 20191008
  Transmission Date: 20200122
  Serious: Yes (Hospitalization)
  Sender: FDA-Public Use
  Company Number: IT-PFIZER INC-2019426952

PATIENT
  Age: 88 Year
  Sex: Female
  Weight: 72 kg

DRUGS (1)
  1. HALCION [Suspect]
     Active Substance: TRIAZOLAM
     Indication: MENTAL DISORDER
     Dosage: 0.25 UG, 4X/DAY
     Route: 048
     Dates: start: 20190803, end: 20190803

REACTIONS (5)
  - Depressed level of consciousness [Recovering/Resolving]
  - Off label use [Unknown]
  - Sopor [Recovering/Resolving]
  - Product use in unapproved indication [Unknown]
  - Accidental overdose [Unknown]

NARRATIVE: CASE EVENT DATE: 20190803
